FAERS Safety Report 7260404-9 (Version None)
Quarter: 2011Q1

REPORT INFORMATION
  Report Type: 
  Country: None (occurrence: None)
  Receive Date: 20110130
  Receipt Date: 20101028
  Transmission Date: 20110831
  Serious: No
  Sender: FDA-Public Use
  Company Number: US-ABBOTT-10P-163-0682806-00

PATIENT
  Sex: Male
  Weight: 81.72 kg

DRUGS (3)
  1. PERCOCET [Concomitant]
     Indication: CROHN'S DISEASE
  2. CLONAZEPAM [Concomitant]
     Indication: STRESS
  3. HUMIRA [Suspect]
     Indication: CROHN'S DISEASE
     Route: 058
     Dates: start: 20090101, end: 20100701

REACTIONS (2)
  - ARTHRITIS [None]
  - CROHN'S DISEASE [None]
